FAERS Safety Report 5210635-4 (Version None)
Quarter: 2006Q4

REPORT INFORMATION
  Report Type: 
  Country: None (occurrence: None)
  Receive Date: 20061106
  Receipt Date: 20060815
  Transmission Date: 20070319
  Serious: No
  Sender: FDA-Public Use
  Company Number: VNL_0186_2006

PATIENT
  Age: 68 Year
  Sex: Female
  Weight: 90.7194 kg

DRUGS (9)
  1. APOKYN [Suspect]
     Indication: PARKINSON'S DISEASE
     Dosage: 0.2 MG ONCE SC
     Route: 058
     Dates: start: 20060811
  2. TIGAN [Concomitant]
  3. NAPROXEN [Concomitant]
  4. CARBO/LEVO-EX [Concomitant]
  5. CLONAZEPAM [Concomitant]
  6. CARBIDOPA AND LEVODOPA [Concomitant]
  7. PROZAC [Concomitant]
  8. COMTAN [Concomitant]
  9. AZILECT [Concomitant]

REACTIONS (3)
  - AGGRESSION [None]
  - ANGER [None]
  - INSOMNIA [None]
